FAERS Safety Report 6318998-3 (Version None)
Quarter: 2009Q3

REPORT INFORMATION
  Report Type: 
  Country: None (occurrence: None)
  Receive Date: 20090821
  Receipt Date: 20080826
  Transmission Date: 20100115
  Serious: No
  Sender: FDA-Public Use
  Company Number: US-ABBOTT-08P-163-0458820-00

PATIENT
  Sex: Male
  Weight: 111.23 kg

DRUGS (4)
  1. NIASPAN [Suspect]
     Indication: HIGH DENSITY LIPOPROTEIN DECREASED
     Route: 048
     Dates: start: 20080301
  2. NIASPAN [Suspect]
     Indication: BLOOD CHOLESTEROL INCREASED
  3. PRINZIDE [Concomitant]
     Indication: HYPERTENSION
     Dosage: 20/25 MG DAILY
     Route: 048
     Dates: start: 20080301
  4. ASPIRIN [Concomitant]
     Indication: DRUG USE FOR UNKNOWN INDICATION
     Route: 048
     Dates: start: 20080601

REACTIONS (3)
  - DIZZINESS [None]
  - FLUSHING [None]
  - HYPERTENSION [None]
